FAERS Safety Report 8407027-3 (Version None)
Quarter: 2012Q2

REPORT INFORMATION
  Report Type: 
  Country: None (occurrence: None)
  Receive Date: 20120323
  Receipt Date: 20111001
  Transmission Date: 20120825
  Serious: Yes (Other)
  Sender: FDA-Public Use
  Company Number: 163-21880-11052362

PATIENT
  Sex: Male

DRUGS (4)
  1. DASATINIB (DASATINIB)(UNKNOWN) [Concomitant]
  2. REVLIMID [Suspect]
     Indication: BRAIN NEOPLASM
     Dosage: 30 MG, DAILY, PO
     Route: 048
     Dates: start: 20110324, end: 20110406
  3. REVLIMID [Suspect]
     Indication: MEDULLOBLASTOMA RECURRENT
     Dosage: 30 MG, DAILY, PO
     Route: 048
     Dates: start: 20110324, end: 20110406
  4. TEMODAR [Concomitant]

REACTIONS (1)
  - PLATELET COUNT DECREASED [None]
